FAERS Safety Report 10076278 (Version 2)
Quarter: 2014Q4

REPORT INFORMATION
  Report Type: Spontaneous
  Country: FR (occurrence: FR)
  Receive Date: 20140414
  Receipt Date: 20141105
  Transmission Date: 20150528
  Serious: Yes (Other)
  Sender: FDA-Public Use
  Company Number: FR-TEVA-474756ISR

PATIENT
  Sex: Female

DRUGS (1)
  1. ANTADYS 100MG [Suspect]
     Active Substance: FLURBIPROFEN
     Indication: DYSMENORRHOEA
     Dosage: 4 TABLETS PER DAY FOR 5 DAYS BEFORE AND DURING HER MENSTRUATION PAIN (20 TABLETS PER MONTH)
     Dates: start: 2000, end: 201403

REACTIONS (2)
  - Infertility [Not Recovered/Not Resolved]
  - Infertility [Unknown]

NARRATIVE: CASE EVENT DATE: 2007
